FAERS Safety Report 21863120 (Version 1)
Quarter: 2023Q1

REPORT INFORMATION
  Report Type: Spontaneous
  Country: US (occurrence: US)
  Receive Date: 20230115
  Receipt Date: 20230115
  Transmission Date: 20230418
  Serious: No
  Sender: FDA-Public Use
  Company Number: US-009507513-2301USA002792

PATIENT
  Age: 53 Year
  Sex: Male

DRUGS (1)
  1. CUBICIN [Suspect]
     Active Substance: DAPTOMYCIN
     Indication: Septic arthritis staphylococcal
     Dosage: UNK
     Route: 042

REACTIONS (1)
  - Product use in unapproved indication [Unknown]
